FAERS Safety Report 6418637-7 (Version None)
Quarter: 2009Q4

REPORT INFORMATION
  Report Type: 
  Country: None (occurrence: None)
  Receive Date: 20091021
  Receipt Date: 20090802
  Transmission Date: 20100525
  Serious: No
  Sender: FDA-Public Use
  Company Number: ALL1-2009-02148

PATIENT
  Age: 47 Year
  Sex: Male

DRUGS (1)
  1. VYVANSE [Suspect]
     Dosage: SEE IMAGE
     Route: 048
     Dates: start: 20090701

REACTIONS (6)
  - DRUG EFFECT DECREASED [None]
  - DYSGEUSIA [None]
  - HEADACHE [None]
  - INAPPROPRIATE SCHEDULE OF DRUG ADMINISTRATION [None]
  - LETHARGY [None]
  - OVERDOSE [None]
